FAERS Safety Report 9378055 (Version 2)
Quarter: 2013Q3

REPORT INFORMATION
  Report Type: Report from Study
  Country: US (occurrence: US)
  Receive Date: 20130701
  Receipt Date: 20130730
  Transmission Date: 20140515
  Serious: Yes (Hospitalization)
  Sender: FDA-Public Use
  Company Number: US-US-EMD SERONO, INC.-7156919

PATIENT
  Age: 35 Year
  Sex: Female
  Weight: 136 kg

DRUGS (7)
  1. REBIF [Suspect]
     Indication: MULTIPLE SCLEROSIS
     Route: 058
     Dates: start: 20080904
  2. ZOLOFT                             /01011401/ [Concomitant]
     Indication: ANXIETY
     Dates: start: 2008
  3. ZOCOR [Concomitant]
     Indication: PRODUCT USED FOR UNKNOWN INDICATION
     Dates: start: 2009
  4. ANTIVERT                           /00007101/ [Concomitant]
     Indication: DIZZINESS
     Dates: start: 2008
  5. BACLOFEN [Concomitant]
     Indication: MUSCLE SPASMS
     Dates: start: 2011
  6. LANTUS [Concomitant]
     Indication: DIABETES MELLITUS
     Dates: start: 2005
  7. TRANSDERM SCOP [Concomitant]
     Indication: DIZZINESS
     Dates: start: 2008

REACTIONS (2)
  - Chest pain [Recovered/Resolved]
  - Muscle spasms [Unknown]
